FAERS Safety Report 6097502-1 (Version None)
Quarter: 2009Q1

REPORT INFORMATION
  Report Type: 
  Country: None (occurrence: None)
  Receive Date: 20090219
  Receipt Date: 20081031
  Transmission Date: 20090719
  Serious: No
  Sender: FDA-Public Use
  Company Number: WAES 0811USA00041

PATIENT
  Age: 68 Year
  Sex: Female

DRUGS (4)
  1. JANUVIA [Suspect]
     Indication: TYPE 2 DIABETES MELLITUS
     Dosage: 100 MG/DAILY/PO
     Route: 048
     Dates: start: 20061001
  2. ACTOS [Concomitant]
  3. CRESTOR [Concomitant]
  4. LOPRESSOR [Concomitant]

REACTIONS (2)
  - EXCORIATION [None]
  - SKIN DISORDER [None]
